FAERS Safety Report 13883779 (Version 3)
Quarter: 2017Q3

REPORT INFORMATION
  Report Type: Report from Study
  Country: None (occurrence: CH)
  Receive Date: 20170819
  Receipt Date: 20170908
  Transmission Date: 20171127
  Serious: Yes (Hospitalization, Other)
  Sender: FDA-Public Use
  Company Number: CH-ABBVIE-17K-151-2075000-00

PATIENT
  Sex: Male

DRUGS (1)
  1. DUODOPA [Suspect]
     Active Substance: CARBIDOPA\LEVODOPA
     Indication: PARKINSON^S DISEASE
     Dosage: MORNING DOSE: 6ML, CONTINUOUS DOSE: 2.7ML/H, EXTRA DOSE: 1ML ?16HOUR THERAPY
     Route: 050
     Dates: start: 20170515, end: 20170904

REACTIONS (5)
  - Body temperature increased [Unknown]
  - General physical health deterioration [Unknown]
  - Device occlusion [Recovered/Resolved]
  - Pneumonia aspiration [Recovered/Resolved]
  - Device occlusion [Not Recovered/Not Resolved]

NARRATIVE: CASE EVENT DATE: 2017
